FAERS Safety Report 7113033-1 (Version None)
Quarter: 2010Q4

REPORT INFORMATION
  Report Type: 
  Country: None (occurrence: None)
  Receive Date: 20101119
  Receipt Date: 20101113
  Transmission Date: 20110411
  Serious: Yes (Other)
  Sender: FDA-Public Use
  Company Number: US-BAYER-201023655BCC

PATIENT
  Age: 87 Year
  Sex: Male
  Weight: 91 kg

DRUGS (7)
  1. LEMON LIME ALKA SELTZER [Suspect]
     Indication: PRODUCT USED FOR UNKNOWN INDICATION
     Dosage: TOTAL DAILY DOSE: 1 DF
     Route: 048
     Dates: start: 20101101, end: 20101101
  2. LEMON LIME ALKA SELTZER [Suspect]
     Dosage: TOTAL DAILY DOSE: 1 DF
     Route: 048
     Dates: start: 20101112
  3. COZAAR [Concomitant]
  4. CATAPRES [Concomitant]
  5. XANAX [Concomitant]
  6. NORVASC [Concomitant]
  7. ZOCOR [Concomitant]

REACTIONS (1)
  - BLOOD URINE PRESENT [None]
